FAERS Safety Report 16449380 (Version 2)
Quarter: 2019Q3

REPORT INFORMATION
  Report Type: Report from Study
  Country: DE (occurrence: DE)
  Receive Date: 20190619
  Receipt Date: 20190704
  Transmission Date: 20191004
  Serious: Yes (Hospitalization, Other)
  Sender: FDA-Public Use
  Company Number: DE-ROCHE-2334233

PATIENT
  Age: 40 Year
  Sex: Female
  Weight: 55 kg

DRUGS (3)
  1. OCRELIZUMAB. [Suspect]
     Active Substance: OCRELIZUMAB
     Indication: PRIMARY PROGRESSIVE MULTIPLE SCLEROSIS
     Route: 042
     Dates: start: 20180604
  2. OCRELIZUMAB. [Suspect]
     Active Substance: OCRELIZUMAB
     Route: 042
     Dates: start: 20190604
  3. BOTOX [Concomitant]
     Active Substance: ONABOTULINUMTOXINA
     Indication: NEUROGENIC BLADDER

REACTIONS (10)
  - Fungal infection [Recovered/Resolved]
  - Infusion related reaction [Recovered/Resolved]
  - Yawning [Unknown]
  - Throat irritation [Recovered/Resolved]
  - Abdominal pain [Recovered/Resolved]
  - Cholecystectomy [Unknown]
  - Throat tightness [Recovered/Resolved]
  - Neck pain [Recovered/Resolved]
  - Urinary tract infection [Recovered/Resolved]
  - Disturbance in attention [Unknown]

NARRATIVE: CASE EVENT DATE: 20180813
